FAERS Safety Report 25538891 (Version 1)
Quarter: 2025Q3

REPORT INFORMATION
  Report Type: Spontaneous
  Country: TW (occurrence: TW)
  Receive Date: 20250710
  Receipt Date: 20250710
  Transmission Date: 20251020
  Serious: Yes (Hospitalization, Other)
  Sender: MYLAN
  Company Number: TW-MYLANLABS-2025M1055522

PATIENT
  Age: 19 Year
  Sex: Female

DRUGS (3)
  1. XANAX [Suspect]
     Active Substance: ALPRAZOLAM
     Indication: Product used for unknown indication
  2. VENLAFAXINE HYDROCHLORIDE [Suspect]
     Active Substance: VENLAFAXINE HYDROCHLORIDE
     Indication: Product used for unknown indication
  3. LAMICTAL [Suspect]
     Active Substance: LAMOTRIGINE
     Indication: Product used for unknown indication

REACTIONS (8)
  - Stevens-Johnson syndrome [Recovered/Resolved]
  - Rash [Recovered/Resolved]
  - Oropharyngeal pain [Unknown]
  - Ocular hyperaemia [Unknown]
  - Enterovirus infection [Unknown]
  - Hand-foot-and-mouth disease [Unknown]
  - Pyrexia [Unknown]
  - Urinary tract infection [Unknown]

NARRATIVE: CASE EVENT DATE: 20241001
